FAERS Safety Report 5652150-X (Version None)
Quarter: 2008Q1

REPORT INFORMATION
  Report Type: 
  Country: None (occurrence: None)
  Receive Date: 20080304
  Receipt Date: 20080222
  Transmission Date: 20080703
  Serious: Yes (Hospitalization)
  Sender: FDA-Public Use
  Company Number: TW-JNJFOC-20080104416

PATIENT
  Age: 72 Year
  Sex: Male

DRUGS (13)
  1. DECITABINE (DECITABINE) LYOPHILIZED POWDER [Suspect]
     Indication: ACUTE MYELOID LEUKAEMIA
     Dosage: 20 MG/M2, 1 IN 1 DAY, INTRAVENOUS; 20 MG/M2, 1 IN 1 DAY, INTRAVENOUS, 20 MG/M2, 1 IN 1 DAY, INTRAVEN
     Route: 042
     Dates: start: 20071204, end: 20071208
  2. DECITABINE (DECITABINE) LYOPHILIZED POWDER [Suspect]
     Indication: ACUTE MYELOID LEUKAEMIA
     Dosage: 20 MG/M2, 1 IN 1 DAY, INTRAVENOUS; 20 MG/M2, 1 IN 1 DAY, INTRAVENOUS, 20 MG/M2, 1 IN 1 DAY, INTRAVEN
     Route: 042
     Dates: start: 20080102, end: 20080106
  3. DECITABINE (DECITABINE) LYOPHILIZED POWDER [Suspect]
     Indication: ACUTE MYELOID LEUKAEMIA
     Dosage: 20 MG/M2, 1 IN 1 DAY, INTRAVENOUS; 20 MG/M2, 1 IN 1 DAY, INTRAVENOUS, 20 MG/M2, 1 IN 1 DAY, INTRAVEN
     Route: 042
     Dates: start: 20080130
  4. FELODIPINE [Concomitant]
  5. GLIPIZIDE [Concomitant]
  6. METFORMIN HCL [Concomitant]
  7. MAGNESIUM OXIDE (MAGNESIUM OXIDE) [Concomitant]
  8. SILYMARIN (SILYMARIN) [Concomitant]
  9. SENNOSIDE A+B CALCIUM (SENNOSIDE A+B CALCIUM) [Concomitant]
  10. MOSAPRIDE (MOSAPRIDE) [Concomitant]
  11. ACETAMINOPHEN [Concomitant]
  12. CLINDAMYCIN (CLINDAMYCIN) [Concomitant]
  13. CEFEPIME [Concomitant]

REACTIONS (6)
  - ABDOMINAL TENDERNESS [None]
  - FEBRILE NEUTROPENIA [None]
  - HAEMOGLOBIN DECREASED [None]
  - ODYNOPHAGIA [None]
  - PLATELET COUNT DECREASED [None]
  - TONSILLITIS [None]
